FAERS Safety Report 8370064-1 (Version None)
Quarter: 2012Q2

REPORT INFORMATION
  Report Type: 
  Country: None (occurrence: None)
  Receive Date: 20120518
  Receipt Date: 20120515
  Transmission Date: 20120825
  Serious: Yes (Death)
  Sender: FDA-Public Use
  Company Number: PHHY2012FR038023

PATIENT
  Sex: Male
  Weight: 70 kg

DRUGS (2)
  1. AFINITOR [Suspect]
     Indication: RENAL CANCER METASTATIC
     Dosage: 10 MG, QD
     Route: 046
     Dates: start: 20120208
  2. AFINITOR [Suspect]
     Dosage: 5 MG, DAILY
     Dates: start: 20120301, end: 20120301

REACTIONS (9)
  - COUGH [None]
  - FATIGUE [None]
  - MALAISE [None]
  - WHEEZING [None]
  - LUNG DISORDER [None]
  - DYSPNOEA [None]
  - DIARRHOEA [None]
  - RALES [None]
  - LUNG NEOPLASM [None]
